FAERS Safety Report 24946320 (Version 1)
Quarter: 2025Q1

REPORT INFORMATION
  Report Type: Spontaneous
  Country: JP (occurrence: JP)
  Receive Date: 20250210
  Receipt Date: 20250210
  Transmission Date: 20250408
  Serious: Yes (Death, Other)
  Sender: ASTELLAS
  Company Number: JP-ASTELLAS-2025-AER-007480

PATIENT
  Age: 94 Year
  Sex: Male

DRUGS (2)
  1. XTANDI [Suspect]
     Active Substance: ENZALUTAMIDE
     Indication: Product used for unknown indication
     Dosage: MORNING, 28-DAY DOSE
     Route: 048
  2. XTANDI [Suspect]
     Active Substance: ENZALUTAMIDE
     Dosage: TWO 35-DAY DOSES OF ENZALUTAMIDE ON 01-FEB-2024 AND 07-MAR-2024
     Route: 065
     Dates: start: 20240201, end: 20240410

REACTIONS (1)
  - Death [Fatal]
